FAERS Safety Report 6762268-6 (Version None)
Quarter: 2010Q2

REPORT INFORMATION
  Report Type: 
  Country: None (occurrence: None)
  Receive Date: 20100510
  Receipt Date: 20100427
  Transmission Date: 20101027
  Serious: Yes (Hospitalization, Other)
  Sender: FDA-Public Use
  Company Number: AEUSA201000141

PATIENT
  Age: 12 Year
  Sex: Male
  Weight: 46.2 kg

DRUGS (8)
  1. GAMUNEX [Suspect]
     Indication: KAWASAKI'S DISEASE
     Dosage: 7.3 GM;1X;IV; 10.0 GM;1X;IV; 4.5 GM;1X;IV
     Route: 042
     Dates: start: 20100316, end: 20100316
  2. GAMUNEX [Suspect]
     Indication: KAWASAKI'S DISEASE
     Dosage: 7.3 GM;1X;IV; 10.0 GM;1X;IV; 4.5 GM;1X;IV
     Route: 042
     Dates: start: 20100318, end: 20100318
  3. GAMUNEX [Suspect]
     Indication: KAWASAKI'S DISEASE
     Dosage: 7.3 GM;1X;IV; 10.0 GM;1X;IV; 4.5 GM;1X;IV
     Route: 042
     Dates: start: 20100318, end: 20100318
  4. GAMUNEX [Suspect]
  5. HYDROCORTISONE [Concomitant]
  6. LANSOPRAZOLE [Concomitant]
  7. MAGNESIUM OXIDE [Concomitant]
  8. METHADONE [Concomitant]

REACTIONS (6)
  - CHEST X-RAY ABNORMAL [None]
  - HAEMATOCRIT DECREASED [None]
  - HAEMOGLOBIN DECREASED [None]
  - PLATELET COUNT DECREASED [None]
  - RENAL FAILURE [None]
  - RESPIRATORY FAILURE [None]
